FAERS Safety Report 19543853 (Version 1)
Quarter: 2021Q3

REPORT INFORMATION
  Report Type: Spontaneous
  Country: FR (occurrence: FR)
  Receive Date: 20210714
  Receipt Date: 20210714
  Transmission Date: 20211014
  Serious: Yes (Hospitalization, Other)
  Sender: FDA-Public Use
  Company Number: FR-VALIDUS PHARMACEUTICALS LLC-FR-VDP-2021-000035

PATIENT
  Age: 90 Year
  Sex: Male
  Weight: 55.9 kg

DRUGS (2)
  1. UN?ALFA [Suspect]
     Active Substance: ALFACALCIDOL
     Indication: PARATHYROID DISORDER
     Dosage: UNK
     Route: 065
  2. FUROSEMIDE. [Suspect]
     Active Substance: FUROSEMIDE
     Indication: CARDIAC FAILURE
     Dosage: LONG COURSE
     Route: 048

REACTIONS (2)
  - Renal failure [Recovering/Resolving]
  - Hypercalcaemia [Recovering/Resolving]

NARRATIVE: CASE EVENT DATE: 20210112
